FAERS Safety Report 7810768-X (Version None)
Quarter: 2011Q4

REPORT INFORMATION
  Report Type: 
  Country: None (occurrence: None)
  Receive Date: 20111006
  Receipt Date: 20110920
  Transmission Date: 20120403
  Serious: Yes (Other)
  Sender: FDA-Public Use
  Company Number: 2011MA014169

PATIENT
  Age: 39 Year
  Sex: Female

DRUGS (5)
  1. VENLAFAXINE HYDROCHLORIDE TABELTS, 100MG (ATLLC) [Suspect]
     Indication: MIGRAINE
     Dosage: 150 MG, QD
  2. BUTALBITAL ACETAMINOPHEN CAFFEINE [Suspect]
     Indication: MIGRAINE
     Dosage: PO
     Route: 048
  3. TOPIRAMATE [Suspect]
     Indication: MIGRAINE
     Dosage: 200 MG, QD
  4. RIZATRIPTAN [Suspect]
     Indication: MIGRAINE
  5. ASPIRIN [Suspect]
     Indication: MIGRAINE
     Dosage: PO
     Route: 048

REACTIONS (11)
  - DIVORCED [None]
  - HEADACHE [None]
  - DRUG TOLERANCE [None]
  - MATERNAL EXPOSURE DURING PREGNANCY [None]
  - DRUG DEPENDENCE [None]
  - AGGRESSION [None]
  - REFUSAL OF TREATMENT BY PATIENT [None]
  - INCORRECT DOSE ADMINISTERED [None]
  - DRUG INEFFECTIVE [None]
  - STRESS [None]
  - STRESS AT WORK [None]
